FAERS Safety Report 20720408 (Version 1)
Quarter: 2022Q2

REPORT INFORMATION
  Report Type: Spontaneous
  Country: US (occurrence: US)
  Receive Date: 20220418
  Receipt Date: 20220418
  Transmission Date: 20220720
  Serious: No
  Sender: FDA-Public Use
  Company Number: US-PFIZER INC-202101843171

PATIENT
  Age: 63 Year
  Sex: Female

DRUGS (1)
  1. IBRANCE [Suspect]
     Active Substance: PALBOCICLIB
     Dosage: 125 MG
     Dates: start: 20211218

REACTIONS (6)
  - Dyspnoea [Unknown]
  - Spinal pain [Unknown]
  - Hypertension [Unknown]
  - Neck pain [Unknown]
  - Burning sensation [Unknown]
  - Hypoaesthesia [Unknown]
